FAERS Safety Report 6385282-1 (Version None)
Quarter: 2009Q4

REPORT INFORMATION
  Report Type: 
  Country: None (occurrence: None)
  Receive Date: 20091002
  Receipt Date: 20081105
  Transmission Date: 20100525
  Serious: No
  Sender: FDA-Public Use
  Company Number: US-ASTRAZENECA-2008UW15879

PATIENT
  Age: 66 Year
  Sex: Female
  Weight: 57.6 kg

DRUGS (3)
  1. ARIMIDEX [Suspect]
     Indication: BREAST CANCER FEMALE
     Route: 048
     Dates: start: 20071101
  2. FOSAMAX [Concomitant]
  3. BLOOD PRESSURE MEDICINE [Concomitant]

REACTIONS (1)
  - RHEUMATOID ARTHRITIS [None]
